FAERS Safety Report 4809058-9 (Version None)
Quarter: 2005Q4

REPORT INFORMATION
  Report Type: 
  Country: None (occurrence: None)
  Receive Date: 20051021
  Receipt Date: 20040908
  Transmission Date: 20060501
  Serious: Yes (Life-Threatening, Hospitalization, Other)
  Sender: FDA-Public Use
  Company Number: GBS040915554

PATIENT
  Age: 41 Year
  Sex: Female
  Weight: 92 kg

DRUGS (6)
  1. OLANZAPINE [Suspect]
     Indication: SCHIZOPHRENIA
     Dosage: 20 MG DAY
     Dates: end: 20040101
  2. HALDOL DECANOATE (HALOPERIDOL DECANOATE) [Concomitant]
  3. CITALOPRAM [Concomitant]
  4. FLUOXETINE [Concomitant]
  5. PENICILLIN-VK [Concomitant]
  6. TOLTERODINE [Concomitant]

REACTIONS (1)
  - DEEP VEIN THROMBOSIS [None]
